FAERS Safety Report 24250157 (Version 2)
Quarter: 2024Q3

REPORT INFORMATION
  Report Type: Spontaneous
  Country: JP (occurrence: None)
  Receive Date: 20240826
  Receipt Date: 20240905
  Transmission Date: 20241016
  Serious: Yes (Life-Threatening, Hospitalization)
  Sender: ASTRAZENECA
  Company Number: 2024A192289

PATIENT
  Age: 80 Year
  Sex: Male

DRUGS (2)
  1. IMFINZI [Suspect]
     Active Substance: DURVALUMAB
     Indication: Hepatocellular carcinoma
     Route: 041
     Dates: start: 20240731, end: 20240731
  2. IMJUDO [Suspect]
     Active Substance: TREMELIMUMAB\TREMELIMUMAB-ACTL
     Indication: Hepatocellular carcinoma
     Dosage: 300.0MG UNKNOWN
     Route: 041
     Dates: start: 20240731, end: 20240731

REACTIONS (5)
  - Headache [Recovered/Resolved]
  - Multiple organ dysfunction syndrome [Recovered/Resolved]
  - C-reactive protein increased [Recovered/Resolved]
  - Pneumonia [Recovered/Resolved]
  - Cytokine release syndrome [Recovered/Resolved]

NARRATIVE: CASE EVENT DATE: 20240101
